FAERS Safety Report 21023275 (Version 3)
Quarter: 2022Q3

REPORT INFORMATION
  Report Type: Report from Study
  Country: FR (occurrence: FR)
  Receive Date: 20220629
  Receipt Date: 20220705
  Transmission Date: 20221026
  Serious: Yes (Death, Hospitalization)
  Sender: FDA-Public Use
  Company Number: FR-ABBVIE-22K-056-4449783-00

PATIENT
  Age: 84 Year
  Sex: Female

DRUGS (2)
  1. CARBIDOPA\LEVODOPA [Suspect]
     Active Substance: CARBIDOPA\LEVODOPA
     Indication: Parkinson^s disease
     Route: 050
     Dates: start: 202104, end: 20220625
  2. CARBIDOPA\LEVODOPA [Suspect]
     Active Substance: CARBIDOPA\LEVODOPA

REACTIONS (4)
  - Sepsis [Fatal]
  - Gastrointestinal infection [Unknown]
  - Enterocolitis [Unknown]
  - Stoma site discharge [Unknown]

NARRATIVE: CASE EVENT DATE: 20220601
